FAERS Safety Report 8136378-5 (Version None)
Quarter: 2012Q1

REPORT INFORMATION
  Report Type: 
  Country: None (occurrence: None)
  Receive Date: 20120210
  Receipt Date: 20120126
  Transmission Date: 20120608
  Serious: Yes (Life-Threatening)
  Sender: FDA-Public Use
  Company Number: USW201202-000007

PATIENT
  Age: 67 Year
  Sex: Female
  Weight: 65 kg

DRUGS (3)
  1. STALEVO 100 [Concomitant]
  2. PK-MERZ [Concomitant]
  3. APOKYN [Suspect]
     Indication: PARKINSON'S DISEASE
     Dosage: 6 MG, DAILY, SUBCUTANEOUS
     Route: 058
     Dates: start: 20120120, end: 20120123

REACTIONS (3)
  - APPARENT LIFE THREATENING EVENT [None]
  - ERYTHEMA [None]
  - PRURITUS [None]
